FAERS Safety Report 9761446 (Version 2)
Quarter: 2014Q1

REPORT INFORMATION
  Report Type: Report from Study
  Country: US (occurrence: US)
  Receive Date: 20131216
  Receipt Date: 20140228
  Transmission Date: 20141002
  Serious: Yes (Hospitalization, Other)
  Sender: FDA-Public Use
  Company Number: PHEH2013US025692

PATIENT
  Age: 34 Year
  Sex: Male

DRUGS (1)
  1. GILENYA [Suspect]
     Indication: RELAPSING-REMITTING MULTIPLE SCLEROSIS
     Dosage: UNK
     Route: 048
     Dates: start: 201107, end: 201211

REACTIONS (5)
  - Complex partial seizures [Unknown]
  - Grand mal convulsion [Recovering/Resolving]
  - Loss of consciousness [Unknown]
  - Convulsion [Unknown]
  - Secondary progressive multiple sclerosis [Unknown]
